FAERS Safety Report 10074878 (Version 1)
Quarter: 2014Q2

REPORT INFORMATION
  Report Type: Spontaneous
  Country: US (occurrence: US)
  Receive Date: 20140414
  Receipt Date: 20140414
  Transmission Date: 20141212
  Serious: No
  Sender: FDA-Public Use
  Company Number: US-BIOGENIDEC-2014BI031679

PATIENT
  Age: 46 Year
  Sex: Male

DRUGS (2)
  1. AVONEX [Suspect]
     Indication: MULTIPLE SCLEROSIS
     Route: 030
     Dates: start: 20030523, end: 20140306
  2. AVONEX [Suspect]
     Indication: MULTIPLE SCLEROSIS
     Route: 030
     Dates: start: 201403

REACTIONS (13)
  - Fall [Recovered/Resolved]
  - Head injury [Unknown]
  - Limb discomfort [Not Recovered/Not Resolved]
  - Gait disturbance [Not Recovered/Not Resolved]
  - Feeling drunk [Unknown]
  - Mobility decreased [Not Recovered/Not Resolved]
  - Stress [Not Recovered/Not Resolved]
  - Pain [Unknown]
  - Influenza like illness [Recovered/Resolved]
  - Diarrhoea [Unknown]
  - Nausea [Recovered/Resolved]
  - Headache [Recovered/Resolved]
  - Vomiting [Unknown]
